FAERS Safety Report 19613937 (Version 1)
Quarter: 2021Q3

REPORT INFORMATION
  Report Type: Spontaneous
  Country: GB (occurrence: GB)
  Receive Date: 20210727
  Receipt Date: 20210727
  Transmission Date: 20211014
  Serious: Yes (Other)
  Sender: FDA-Public Use
  Company Number: GB-MYLANLABS-2021M1045557

PATIENT
  Age: 26 Year
  Sex: Female
  Weight: 80 kg

DRUGS (12)
  1. COSMOCOL [Concomitant]
     Dosage: 1 DOSAGE FORM, BID
     Dates: start: 20210712
  2. METRONIDAZOLE. [Concomitant]
     Active Substance: METRONIDAZOLE
     Dosage: 1 DOSAGE FORM, TID
     Dates: start: 20210715
  3. SENNA                              /00142201/ [Concomitant]
     Active Substance: SENNA LEAF
     Dosage: TAKE 1 OR 2 AT NIGHT
     Dates: start: 20210712
  4. DOXYCYCLINE. [Suspect]
     Active Substance: DOXYCYCLINE
     Indication: ENDOMETRITIS
     Dosage: 100 MILLIGRAM, BID
     Route: 048
     Dates: start: 20210714
  5. NITROFURANTOIN. [Concomitant]
     Active Substance: NITROFURANTOIN
     Dosage: 1 DOSAGE FORM, BID
     Dates: start: 20210712, end: 20210719
  6. PROCHLORPERAZINE. [Concomitant]
     Active Substance: PROCHLORPERAZINE
     Dosage: 1 DOSAGE FORM, TID
     Dates: start: 20201119
  7. PROMETHAZINE HYDROCHLORIDE. [Concomitant]
     Active Substance: PROMETHAZINE HYDROCHLORIDE
     Dosage: EACH NIGHT
     Dates: start: 20210623
  8. LAMOTRIGINE. [Concomitant]
     Active Substance: LAMOTRIGINE
     Dosage: 1 DOSAGE FORM, QD
     Dates: start: 20210106
  9. ARIPIPRAZOLE. [Concomitant]
     Active Substance: ARIPIPRAZOLE
     Dosage: 1 DOSAGE FORM, QD
     Dates: start: 20210504, end: 20210607
  10. CHLORPHENAMINE [Concomitant]
     Active Substance: CHLORPHENIRAMINE MALEATE
     Dosage: EVERY 4?6 HRS
     Dates: start: 20210715
  11. FERROUS FUMARATE [Concomitant]
     Active Substance: FERROUS FUMARATE
     Dosage: 1 DOSAGE FORM, BID
     Dates: start: 20210422, end: 20210520
  12. GLYCEROL [Concomitant]
     Active Substance: GLYCERIN
     Dosage: INSERT AS NEEDED
     Dates: start: 20210712

REACTIONS (4)
  - Nausea [Recovered/Resolved]
  - Pruritus [Unknown]
  - Swelling face [Recovered/Resolved]
  - Rash pruritic [Recovered/Resolved]

NARRATIVE: CASE EVENT DATE: 20210714
